FAERS Safety Report 9969289 (Version 1)
Quarter: 2014Q1

REPORT INFORMATION
  Report Type: Spontaneous
  Country: US (occurrence: US)
  Receive Date: 20140306
  Receipt Date: 20140306
  Transmission Date: 20141002
  Serious: No
  Sender: FDA-Public Use
  Company Number: US-BIOGENIDEC-2014BI018295

PATIENT
  Age: 37 Year
  Sex: Female

DRUGS (5)
  1. TECFIDERA [Suspect]
     Indication: MULTIPLE SCLEROSIS
     Route: 048
     Dates: start: 20131121
  2. CYMBALTA [Concomitant]
  3. VERAPAMIL ER [Concomitant]
  4. NUVIGIL [Concomitant]
  5. VITAMIN D3 [Concomitant]

REACTIONS (1)
  - Alopecia [Not Recovered/Not Resolved]
